FAERS Safety Report 7948923-0 (Version None)
Quarter: 2011Q4

REPORT INFORMATION
  Report Type: 
  Country: None (occurrence: None)
  Receive Date: 20111130
  Receipt Date: 20111126
  Transmission Date: 20120403
  Serious: Yes (Death, Hospitalization, Other)
  Sender: FDA-Public Use
  Company Number: PHHY2011MX92002

PATIENT
  Age: 82 Year
  Sex: Male

DRUGS (1)
  1. EXFORGE HCT [Suspect]
     Indication: HYPERTENSION
     Dosage: 1 TABLET (160/5/12.5 MG)
     Dates: start: 20110901, end: 20111101

REACTIONS (4)
  - INFECTIOUS PERITONITIS [None]
  - HAEMORRHAGE [None]
  - RENAL INJURY [None]
  - BLOOD PRESSURE INCREASED [None]
